FAERS Safety Report 5696828-0 (Version None)
Quarter: 2008Q2

REPORT INFORMATION
  Report Type: 
  Country: None (occurrence: None)
  Receive Date: 20080408
  Receipt Date: 20061130
  Transmission Date: 20081010
  Serious: No
  Sender: FDA-Public Use
  Company Number: US-BAYER-US-2006-037431

PATIENT
  Age: 24 Year
  Sex: Female
  Weight: 76 kg

DRUGS (1)
  1. YASMIN [Suspect]
     Indication: CONTRACEPTION
     Route: 048

REACTIONS (2)
  - MEDICATION ERROR [None]
  - MENSTRUATION DELAYED [None]
